FAERS Safety Report 22970788 (Version 2)
Quarter: 2023Q4

REPORT INFORMATION
  Report Type: Spontaneous
  Country: GR (occurrence: GR)
  Receive Date: 20230922
  Receipt Date: 20231102
  Transmission Date: 20240110
  Serious: No
  Sender: FDA-Public Use
  Company Number: GR-PFIZER INC-PV202300105736

PATIENT
  Age: 72 Year
  Sex: Male
  Weight: 89 kg

DRUGS (1)
  1. ENBREL [Suspect]
     Active Substance: ETANERCEPT
     Dosage: UNK UNK, WEEKLY(EVERY MONDAY)
     Dates: start: 2004

REACTIONS (2)
  - Device delivery system issue [Unknown]
  - Needle issue [Unknown]
